FAERS Safety Report 8587286-7 (Version None)
Quarter: 2012Q3

REPORT INFORMATION
  Report Type: 
  Country: None (occurrence: None)
  Receive Date: 20120810
  Receipt Date: 20120309
  Transmission Date: 20120928
  Serious: No
  Sender: FDA-Public Use
  Company Number: US-ASTRAZENECA-2012SE16904

PATIENT
  Age: 72 Year
  Sex: Female

DRUGS (2)
  1. CELEBREX [Concomitant]
  2. ARIMIDEX [Suspect]
     Route: 048

REACTIONS (2)
  - MALAISE [None]
  - RHEUMATOID ARTHRITIS [None]
